FAERS Safety Report 11153029 (Version 7)
Quarter: 2016Q1

REPORT INFORMATION
  Report Type: Spontaneous
  Country: US (occurrence: US)
  Receive Date: 20150601
  Receipt Date: 20160325
  Transmission Date: 20160525
  Serious: Yes (Hospitalization)
  Sender: FDA-Public Use
  Company Number: US-ACTELION-A-US2015-118623

PATIENT
  Age: 3 Year
  Sex: Female

DRUGS (10)
  1. SILDENAFIL. [Concomitant]
     Active Substance: SILDENAFIL
  2. TYVASO [Concomitant]
     Active Substance: TREPROSTINIL
     Dosage: 9 BREATHS, Q 6 HRS
  3. PULMICORT TURBUHALER [Concomitant]
     Active Substance: BUDESONIDE
  4. TRACLEER [Suspect]
     Active Substance: BOSENTAN
     Dosage: 18.75 MG, BID
     Route: 048
  5. PREVACID [Concomitant]
     Active Substance: LANSOPRAZOLE
  6. LASIX [Concomitant]
     Active Substance: FUROSEMIDE
  7. SOLU-MEDROL [Concomitant]
     Active Substance: METHYLPREDNISOLONE SODIUM SUCCINATE
  8. TRACLEER [Suspect]
     Active Substance: BOSENTAN
     Dosage: 25 MG, BID
     Route: 048
  9. TRACLEER [Suspect]
     Active Substance: BOSENTAN
     Indication: PULMONARY ARTERIAL HYPERTENSION
     Dosage: 12 MG, BID
     Route: 048
     Dates: start: 2014
  10. FERROUS SULFATE [Concomitant]
     Active Substance: FERROUS SULFATE\FERROUS SULFATE, DRIED

REACTIONS (12)
  - Dyspnoea [Unknown]
  - Rhinovirus infection [Unknown]
  - Pyrexia [Unknown]
  - Complication associated with device [Recovering/Resolving]
  - Tracheostomy infection [Unknown]
  - Laryngeal granuloma [Unknown]
  - Pneumothorax [Unknown]
  - Ear, nose and throat examination abnormal [Unknown]
  - Bloody discharge [Recovering/Resolving]
  - Pulmonary arterial hypertension [Unknown]
  - Respiratory disorder [Recovering/Resolving]
  - Ear infection [Unknown]
